FAERS Safety Report 12076121 (Version 4)
Quarter: 2016Q4

REPORT INFORMATION
  Report Type: Spontaneous
  Country: US (occurrence: US)
  Receive Date: 20160215
  Receipt Date: 20161124
  Transmission Date: 20170206
  Serious: Yes (Hospitalization)
  Sender: FDA-Public Use
  Company Number: US-HORIZON-RAV-0026-2016

PATIENT
  Age: 2 Year
  Sex: Male

DRUGS (5)
  1. CYCLINEX [Concomitant]
     Indication: ARGININOSUCCINATE SYNTHETASE DEFICIENCY
  2. RAVICTI [Suspect]
     Active Substance: GLYCEROL PHENYLBUTYRATE
     Indication: ARGININOSUCCINATE SYNTHETASE DEFICIENCY
     Dosage: 1.6 ML TID
     Route: 048
     Dates: start: 20140520
  3. PROTEIN [Concomitant]
     Active Substance: PROTEIN
     Indication: ARGININOSUCCINATE SYNTHETASE DEFICIENCY
  4. PROPHREE [Concomitant]
     Indication: ARGININOSUCCINATE SYNTHETASE DEFICIENCY
  5. ARGININE [Concomitant]
     Active Substance: ARGININE
     Indication: ARGININOSUCCINATE SYNTHETASE DEFICIENCY

REACTIONS (6)
  - Weight decreased [Not Recovered/Not Resolved]
  - Amino acid level decreased [Unknown]
  - Abdominal discomfort [Recovering/Resolving]
  - Ammonia increased [Recovering/Resolving]
  - Speech disorder developmental [Recovering/Resolving]
  - Amino acid level increased [Unknown]
